FAERS Safety Report 19279257 (Version 2)
Quarter: 2021Q2

REPORT INFORMATION
  Report Type: Spontaneous
  Country: US (occurrence: US)
  Receive Date: 20210520
  Receipt Date: 20210528
  Transmission Date: 20210717
  Serious: Yes (Hospitalization)
  Sender: FDA-Public Use
  Company Number: US-AMGEN-USASP2021075221

PATIENT
  Age: 64 Year
  Sex: Male
  Weight: 81.18 kg

DRUGS (1)
  1. VECTIBIX [Suspect]
     Active Substance: PANITUMUMAB
     Indication: RECTAL CANCER
     Dosage: 480 MILLIGRAM
     Route: 065
     Dates: start: 20210310

REACTIONS (1)
  - Rash [Unknown]

NARRATIVE: CASE EVENT DATE: 202103
